FAERS Safety Report 5764821-5 (Version None)
Quarter: 2008Q2

REPORT INFORMATION
  Report Type: 
  Country: None (occurrence: None)
  Receive Date: 20080611
  Receipt Date: 20080530
  Transmission Date: 20081010
  Serious: Yes (Other)
  Sender: FDA-Public Use
  Company Number: US-TYCO HEALTHCARE/MALLINCKRODT-T200800994

PATIENT

DRUGS (3)
  1. OPTIMARK [Suspect]
     Dosage: UNK, SINGLE
     Route: 042
     Dates: start: 20030311, end: 20030311
  2. CONTRAST MEDIA [Suspect]
     Dosage: UNK, SINGLE
     Route: 042
     Dates: start: 20011119, end: 20011119
  3. CONTRAST MEDIA [Suspect]
     Dosage: UNK, SINGLE
     Dates: start: 20020822, end: 20020822

REACTIONS (1)
  - NEPHROGENIC SYSTEMIC FIBROSIS [None]
